FAERS Safety Report 5222710-9 (Version None)
Quarter: 2007Q1

REPORT INFORMATION
  Report Type: 
  Country: None (occurrence: None)
  Receive Date: 20070129
  Receipt Date: 20060307
  Transmission Date: 20070707
  Serious: No
  Sender: FDA-Public Use
  Company Number: US-GLAXOSMITHKLINE-A0596497A

PATIENT
  Age: 33 Year
  Sex: Male

DRUGS (1)
  1. COMBIVIR [Suspect]
     Indication: PROPHYLAXIS
     Dosage: 1TAB TWICE PER DAY
     Route: 048
     Dates: start: 20060307

REACTIONS (5)
  - DIARRHOEA [None]
  - DIZZINESS [None]
  - MYALGIA [None]
  - NAUSEA [None]
  - PAIN [None]
